FAERS Safety Report 18796817 (Version 1)
Quarter: 2021Q1

REPORT INFORMATION
  Report Type: Spontaneous
  Country: US (occurrence: US)
  Receive Date: 20210127
  Receipt Date: 20210127
  Transmission Date: 20210419
  Serious: Yes (Other)
  Sender: FDA-Public Use
  Company Number: NVSC2021US016695

PATIENT
  Age: 71 Year
  Sex: Female

DRUGS (56)
  1. METHYLPREDNISOLONE. [Suspect]
     Active Substance: METHYLPREDNISOLONE
     Indication: ASTHMA
     Dosage: 40 MG
     Route: 065
  2. METHYLPREDNISOLONE. [Suspect]
     Active Substance: METHYLPREDNISOLONE
     Indication: SINUSITIS
     Dosage: 60 MG X 1, 40 MG X 1
     Route: 065
  3. METHYLPREDNISOLONE. [Suspect]
     Active Substance: METHYLPREDNISOLONE
     Dosage: 40 MG X 4
     Route: 065
  4. PREDNISONE. [Suspect]
     Active Substance: PREDNISONE
     Indication: ASTHMA
     Dosage: 20 MG, TID
     Route: 065
  5. PREDNISONE. [Suspect]
     Active Substance: PREDNISONE
     Dosage: 40 MG, QD
     Route: 065
  6. PREDNISONE. [Suspect]
     Active Substance: PREDNISONE
     Dosage: 40 MG
     Route: 065
  7. PREDNISONE. [Suspect]
     Active Substance: PREDNISONE
     Dosage: 40 MG, QD
     Route: 065
  8. TRIAMCINOLONE [Suspect]
     Active Substance: TRIAMCINOLONE
     Indication: ARTHRALGIA
     Dosage: 0.1% BID EAR DROP PRN
     Route: 065
  9. FLUTICASONE. [Suspect]
     Active Substance: FLUTICASONE
     Indication: ASTHMA
     Dosage: 220 MCG ?1?2 PUFFS BID
     Route: 065
  10. AMLODIPINE [Concomitant]
     Active Substance: AMLODIPINE BESYLATE
     Indication: HYPERTENSION
     Dosage: UNK
     Route: 065
  11. PREDNISONE. [Suspect]
     Active Substance: PREDNISONE
     Indication: SINUSITIS
     Dosage: 15 MG
     Route: 065
  12. PREDNISONE. [Suspect]
     Active Substance: PREDNISONE
     Dosage: 20 MG, QD
     Route: 065
  13. PREDNISONE. [Suspect]
     Active Substance: PREDNISONE
     Dosage: 20 MG, QD
     Route: 065
  14. MOMETASONE [Suspect]
     Active Substance: MOMETASONE
     Indication: SINUSITIS
  15. MOMETASONE [Suspect]
     Active Substance: MOMETASONE
     Indication: ARTHRALGIA
  16. FLUTICASONE. [Suspect]
     Active Substance: FLUTICASONE
     Indication: SINUSITIS
     Dosage: 220 MCG 2 PUFFS BID PRN
     Route: 065
  17. FLUTICASONE. [Suspect]
     Active Substance: FLUTICASONE
     Dosage: 500/50 1 PUFF BID
     Route: 065
  18. METHYLPREDNISOLONE. [Suspect]
     Active Substance: METHYLPREDNISOLONE
     Indication: ARTHRALGIA
     Dosage: 100 MG X 1
     Route: 065
  19. FLUCONAZOLE. [Interacting]
     Active Substance: FLUCONAZOLE
     Indication: ONYCHOMYCOSIS
     Dosage: UNK
     Route: 065
  20. PREDNISONE. [Suspect]
     Active Substance: PREDNISONE
     Dosage: 40 MG X 2 DAY
     Route: 065
  21. PREDNISONE. [Suspect]
     Active Substance: PREDNISONE
     Dosage: 80 MG MAX
     Route: 065
     Dates: start: 2017
  22. FORMOTEROL [Suspect]
     Active Substance: FORMOTEROL
     Indication: ARTHRALGIA
  23. FLUTICASONE. [Suspect]
     Active Substance: FLUTICASONE
     Dosage: 250/50 1 PUFF BID
     Route: 065
  24. CICLOPIROX. [Concomitant]
     Active Substance: CICLOPIROX
     Indication: ONYCHOMYCOSIS
     Dosage: UNK
     Route: 065
  25. BETAMETHASONE DIPROPIONATE,CLOTRIMAZOLE [Suspect]
     Active Substance: BETAMETHASONE DIPROPIONATE\CLOTRIMAZOLE
     Indication: ASTHMA
     Dosage: 1?0.05% BID
     Route: 065
  26. PREDNISONE. [Suspect]
     Active Substance: PREDNISONE
     Dosage: 40 MG
     Route: 065
  27. PREDNISONE. [Suspect]
     Active Substance: PREDNISONE
     Dosage: 20 MG
     Route: 065
  28. PREDNISONE. [Suspect]
     Active Substance: PREDNISONE
     Dosage: 40 MG
     Route: 065
  29. TRIAMCINOLONE [Suspect]
     Active Substance: TRIAMCINOLONE
     Indication: SINUSITIS
     Dosage: 55 MCG/ACTUATION 1?2 SPRAYS EACH NOSTRIL QD
     Route: 065
  30. FLUTICASONE. [Suspect]
     Active Substance: FLUTICASONE
     Indication: ASTHMA
     Dosage: 250/50 1 PUFF BID
     Route: 065
  31. FLUTICASONE. [Suspect]
     Active Substance: FLUTICASONE
     Dosage: 230/21 2 PUFFS BID
     Route: 065
  32. ESCITALOPRAM [Concomitant]
     Active Substance: ESCITALOPRAM OXALATE
     Indication: DEPRESSION
     Dosage: 15 MG, QD
     Route: 065
  33. VENLAFAXINE [Concomitant]
     Active Substance: VENLAFAXINE HYDROCHLORIDE
     Indication: DEPRESSION
     Dosage: 75 MG, QD
     Route: 065
  34. PANTOPRAZOLE [Concomitant]
     Active Substance: PANTOPRAZOLE
     Indication: VOCAL CORD DISORDER
     Dosage: 40 MG, BID
     Route: 065
  35. LEVOTHYROXINE. [Concomitant]
     Active Substance: LEVOTHYROXINE
     Indication: HYPOTHYROIDISM
     Dosage: 25 MCG
     Route: 065
  36. METHYLPREDNISOLONE. [Suspect]
     Active Substance: METHYLPREDNISOLONE
     Dosage: 20 MG
     Route: 065
  37. PREDNISONE. [Suspect]
     Active Substance: PREDNISONE
     Dosage: 20 MG, BID
     Route: 065
  38. PREDNISONE. [Suspect]
     Active Substance: PREDNISONE
     Dosage: 10 MG, QD
     Route: 065
  39. PREDNISONE. [Suspect]
     Active Substance: PREDNISONE
     Dosage: 60 MG, QD
     Route: 065
  40. TRIAMCINOLONE [Suspect]
     Active Substance: TRIAMCINOLONE
     Indication: ASTHMA
     Dosage: 75 MCG 3 PUFFS QD
     Route: 065
  41. MOMETASONE [Suspect]
     Active Substance: MOMETASONE
     Indication: ASTHMA
     Dosage: 200/5 2 PUFFS BID
     Route: 065
  42. FORMOTEROL [Suspect]
     Active Substance: FORMOTEROL
     Indication: SINUSITIS
     Dosage: 200 MCG /5 MCG 2 PUFFS BID
     Route: 065
  43. BUDESONIDE. [Suspect]
     Active Substance: BUDESONIDE
     Indication: ASTHMA
     Dosage: 80/4.5 2 PUFFS BID
     Route: 065
  44. FELODIPINE. [Concomitant]
     Active Substance: FELODIPINE
     Indication: HYPERTENSION
     Dosage: UNK
     Route: 065
  45. PREDNISONE. [Suspect]
     Active Substance: PREDNISONE
     Indication: ARTHRALGIA
     Dosage: 50 MG, QD
     Route: 065
  46. PREDNISONE. [Suspect]
     Active Substance: PREDNISONE
     Dosage: 20 MG, BID
     Route: 065
  47. PREDNISONE. [Suspect]
     Active Substance: PREDNISONE
     Dosage: 20 MG
     Route: 065
  48. TERBINAFINE. [Concomitant]
     Active Substance: TERBINAFINE
     Indication: ONYCHOMYCOSIS
     Dosage: UNK
     Route: 065
  49. CIPROFLOXACIN. [Concomitant]
     Active Substance: CIPROFLOXACIN
     Indication: URINARY TRACT INFECTION
     Dosage: 125 MG
     Route: 065
  50. KETOCONAZOLE. [Interacting]
     Active Substance: KETOCONAZOLE
     Indication: ONYCHOMYCOSIS
     Dosage: UNK
     Route: 065
  51. PREDNISONE. [Suspect]
     Active Substance: PREDNISONE
     Dosage: 40 MG, QD
     Route: 065
  52. PREDNISONE. [Suspect]
     Active Substance: PREDNISONE
     Dosage: 10 MG
     Route: 065
  53. PREDNISONE. [Suspect]
     Active Substance: PREDNISONE
     Dosage: UNK
     Route: 065
  54. FORMOTEROL [Suspect]
     Active Substance: FORMOTEROL
     Indication: ASTHMA
  55. FLUTICASONE. [Suspect]
     Active Substance: FLUTICASONE
     Indication: ARTHRALGIA
     Dosage: 50 MCG 2 SPRAY EACH NOSTRIL BID
     Route: 065
  56. HYOSCYAMINE. [Concomitant]
     Active Substance: HYOSCYAMINE
     Indication: ABDOMINAL PAIN UPPER
     Dosage: UNK
     Route: 065

REACTIONS (3)
  - Adrenal insufficiency [Unknown]
  - Product use in unapproved indication [Unknown]
  - Drug interaction [Unknown]
